FAERS Safety Report 14358208 (Version 1)
Quarter: 2018Q1

REPORT INFORMATION
  Report Type: Spontaneous
  Country: US (occurrence: US)
  Receive Date: 20180105
  Receipt Date: 20180105
  Transmission Date: 20180509
  Serious: No
  Sender: FDA-Public Use
  Company Number: US-SA-2017SA193998

PATIENT
  Sex: Male

DRUGS (3)
  1. ERYTHROMYCIN. [Concomitant]
     Active Substance: ERYTHROMYCIN
     Indication: ECZEMA HERPETICUM
     Route: 065
  2. ZOVIRAX [Concomitant]
     Active Substance: ACYCLOVIR
     Indication: ECZEMA HERPETICUM
     Route: 065
  3. DUPIXENT [Suspect]
     Active Substance: DUPILUMAB
     Route: 058
     Dates: start: 201704

REACTIONS (3)
  - Erythema of eyelid [Unknown]
  - Conjunctivitis [Unknown]
  - Eyelid oedema [Unknown]
